FAERS Safety Report 11968725 (Version 1)
Quarter: 2016Q1

REPORT INFORMATION
  Report Type: Spontaneous
  Country: GB (occurrence: GB)
  Receive Date: 20160128
  Receipt Date: 20160128
  Transmission Date: 20160526
  Serious: Yes (Death)
  Sender: FDA-Public Use
  Company Number: GB-THE MEDICINES COMPANY-GB-MDCO-16-00012

PATIENT
  Age: 48 Year
  Sex: Male

DRUGS (3)
  1. KENGREXAL [Suspect]
     Active Substance: CANGRELOR
     Indication: PERCUTANEOUS CORONARY INTERVENTION
     Dosage: NOT REPORTED
     Route: 040
     Dates: start: 20160119
  2. KENGREXAL [Suspect]
     Active Substance: CANGRELOR
     Dosage: NOT REPORTED
     Route: 041
     Dates: start: 20160119
  3. HEPARIN [Concomitant]
     Active Substance: HEPARIN SODIUM
     Indication: PERCUTANEOUS CORONARY INTERVENTION
     Dosage: 5000-7000
     Dates: start: 20151219

REACTIONS (3)
  - Administration site haemorrhage [Unknown]
  - Vessel puncture site haematoma [Unknown]
  - Death [Fatal]

NARRATIVE: CASE EVENT DATE: 20160119
